FAERS Safety Report 22035650 (Version 1)
Quarter: 2023Q1

REPORT INFORMATION
  Report Type: Spontaneous
  Country: US (occurrence: None)
  Receive Date: 20230223
  Receipt Date: 20230223
  Transmission Date: 20230418
  Serious: Yes (Other)
  Sender: FDA-Public Use
  Company Number: None

PATIENT
  Age: 124 Year
  Sex: Female
  Weight: 60.75 kg

DRUGS (1)
  1. VENLAFAXINE [Suspect]
     Active Substance: VENLAFAXINE HYDROCHLORIDE
     Indication: Antidepressant therapy
     Dosage: FREQUENCY : DAILY;?
     Route: 048
     Dates: start: 20170801, end: 20220422

REACTIONS (5)
  - Libido decreased [None]
  - Therapy cessation [None]
  - Personal relationship issue [None]
  - Stress [None]
  - Therapeutic product ineffective [None]

NARRATIVE: CASE EVENT DATE: 20220401
